FAERS Safety Report 25969664 (Version 2)
Quarter: 2025Q4

REPORT INFORMATION
  Report Type: Spontaneous
  Country: US (occurrence: US)
  Receive Date: 20251028
  Receipt Date: 20251111
  Transmission Date: 20260119
  Serious: Yes (Other)
  Sender: AMGEN
  Company Number: US-AMGEN-USASP2025211725

PATIENT
  Age: 74 Year
  Sex: Female

DRUGS (1)
  1. REPATHA [Suspect]
     Active Substance: EVOLOCUMAB
     Indication: Product used for unknown indication
     Dosage: UNK
     Route: 065

REACTIONS (6)
  - Diabetes mellitus [Unknown]
  - Device difficult to use [Unknown]
  - Product administration error [Unknown]
  - Drug dose omission by device [Unknown]
  - Intercepted product administration error [Unknown]
  - Accidental exposure to product [Unknown]

NARRATIVE: CASE EVENT DATE: 20230101
